FAERS Safety Report 5981708-3 (Version None)
Quarter: 2008Q4

REPORT INFORMATION
  Report Type: 
  Country: None (occurrence: None)
  Receive Date: 20081205
  Receipt Date: 20081127
  Transmission Date: 20090506
  Serious: Yes (Hospitalization, Other)
  Sender: FDA-Public Use
  Company Number: RU-ELI_LILLY_AND_COMPANY-RU200808000914

PATIENT
  Age: 25 Year
  Sex: Male
  Weight: 72 kg

DRUGS (9)
  1. ZYPREXA [Suspect]
     Indication: SCHIZOPHRENIA, PARANOID TYPE
     Dosage: 20 MG, 2/D
     Route: 048
     Dates: start: 20080724, end: 20080724
  2. ZYPREXA [Suspect]
     Dosage: 20 MG, 2/D
     Route: 048
     Dates: start: 20080725, end: 20080725
  3. ZYPREXA [Suspect]
     Dosage: 20 MG, 2/D
     Route: 048
     Dates: start: 20080727, end: 20080727
  4. PHENAZEPAM [Concomitant]
     Indication: SCHIZOPHRENIA, PARANOID TYPE
     Dosage: 1 MG, DAILY (1/D)
     Dates: start: 20080724, end: 20080726
  5. DIAZEPAM [Concomitant]
     Indication: SEDATION
     Dosage: 1 D/F, 2/D
     Dates: start: 20080724, end: 20080726
  6. CYCLODOL [Concomitant]
     Indication: PARKINSONISM
     Dosage: 2 MG, 3/D
     Dates: start: 20080724, end: 20080726
  7. CITALOPRAM HYDROBROMIDE [Concomitant]
     Indication: ANXIETY
     Dosage: 20 MG, 2/D
     Route: 048
     Dates: start: 20080724, end: 20080726
  8. CLOZAPINE [Concomitant]
     Indication: SCHIZOPHRENIA, PARANOID TYPE
     Dosage: 50 MG, DAILY (1/D)
     Dates: start: 20080724, end: 20080726
  9. PK-MERZ [Concomitant]
     Indication: PARKINSONISM
     Dosage: 100 MG, 2/D
     Route: 048
     Dates: start: 20080724, end: 20080726

REACTIONS (5)
  - ANXIETY [None]
  - NEUROLEPTIC MALIGNANT SYNDROME [None]
  - OVERDOSE [None]
  - TREMOR [None]
  - URINE FLOW DECREASED [None]
